FAERS Safety Report 5259215-5 (Version None)
Quarter: 2007Q1

REPORT INFORMATION
  Report Type: 
  Country: None (occurrence: None)
  Receive Date: 20070308
  Receipt Date: 20070226
  Transmission Date: 20070707
  Serious: Yes (Hospitalization)
  Sender: FDA-Public Use
  Company Number: IT-PFIZER INC-2007012781

PATIENT
  Sex: Female
  Weight: 63.5 kg

DRUGS (9)
  1. SU-011,248 [Suspect]
     Indication: RENAL CELL CARCINOMA STAGE UNSPECIFIED
     Route: 048
  2. MAGALDRATE [Concomitant]
  3. RIFACOL [Concomitant]
  4. NORVASC [Concomitant]
     Dates: start: 20061011, end: 20061019
  5. TRIATEC [Concomitant]
     Dates: start: 20061011, end: 20061019
  6. MAALOX FAST BLOCKER [Concomitant]
     Dates: start: 20061019, end: 20061102
  7. ALL OTHER THERAPEUTIC PRODUCTS [Concomitant]
     Dates: start: 20070116, end: 20070130
  8. ESOMEPRAZOLE MAGNESIUM [Concomitant]
     Route: 048
  9. TORADOL [Concomitant]
     Dates: start: 20060213

REACTIONS (7)
  - CONCUSSION [None]
  - DIARRHOEA [None]
  - FALL [None]
  - PLATELET COUNT DECREASED [None]
  - STOMATITIS [None]
  - SYNCOPE VASOVAGAL [None]
  - VOMITING [None]
